FAERS Safety Report 10957013 (Version 1)
Quarter: 2015Q1

REPORT INFORMATION
  Report Type: Spontaneous
  Country: US (occurrence: None)
  Receive Date: 20150325
  Receipt Date: 20150325
  Transmission Date: 20150721
  Serious: Yes (Other)
  Sender: FDA-Public Use
  Company Number: None

PATIENT
  Age: 55 Year
  Sex: Female
  Weight: 81.19 kg

DRUGS (1)
  1. DULOXETINE 30 MG ACTAVIS [Suspect]
     Active Substance: DULOXETINE
     Indication: DEPRESSION
     Dosage: TAKEN BY MOUTH
     Dates: start: 20141217, end: 20150323

REACTIONS (2)
  - Depression [None]
  - Anxiety [None]

NARRATIVE: CASE EVENT DATE: 20141217
